FAERS Safety Report 19631991 (Version 2)
Quarter: 2021Q3

REPORT INFORMATION
  Report Type: Report from Study
  Country: US (occurrence: US)
  Receive Date: 20210729
  Receipt Date: 20210730
  Transmission Date: 20211014
  Serious: Yes (Other)
  Sender: FDA-Public Use
  Company Number: US-ASTRAZENECA-2021A539954

PATIENT

DRUGS (4)
  1. BREZTRI [Concomitant]
     Active Substance: BUDESONIDE\FORMOTEROL\GLYCOPYRRONIUM
  2. O2 [Concomitant]
     Active Substance: OXYGEN
  3. CELEXA [Concomitant]
     Active Substance: CITALOPRAM HYDROBROMIDE
  4. SYMBICORT [Suspect]
     Active Substance: BUDESONIDE\FORMOTEROL FUMARATE DIHYDRATE
     Dosage: UNKNOWN
     Route: 055
     Dates: start: 20150225, end: 20210617

REACTIONS (14)
  - Drug ineffective [Unknown]
  - Oxygen saturation decreased [Unknown]
  - Hypoxia [Unknown]
  - Crying [Unknown]
  - Sputum retention [Unknown]
  - Panic attack [Unknown]
  - Depression [Unknown]
  - Oxygen saturation abnormal [Unknown]
  - Chronic obstructive pulmonary disease [Unknown]
  - Dyspnoea [Unknown]
  - Helplessness [Unknown]
  - Impaired work ability [Unknown]
  - Irritability [Unknown]
  - Fatigue [Unknown]
